FAERS Safety Report 9275963 (Version 8)
Quarter: 2013Q4

REPORT INFORMATION
  Report Type: Spontaneous
  Country: US (occurrence: US)
  Receive Date: 20130507
  Receipt Date: 20131209
  Transmission Date: 20140711
  Serious: Yes (Hospitalization, Congenital Anomaly, Other)
  Sender: FDA-Public Use
  Company Number: US-JNJFOC-20130502333

PATIENT
  Sex: Female

DRUGS (7)
  1. TOPAMAX [Suspect]
     Indication: FOETAL EXPOSURE DURING PREGNANCY
     Route: 064
     Dates: start: 200511, end: 200601
  2. WELLBUTRIN [Suspect]
     Indication: FOETAL EXPOSURE DURING PREGNANCY
     Route: 064
  3. ESTROGEN [Suspect]
     Indication: FOETAL EXPOSURE DURING PREGNANCY
     Route: 064
  4. ZOLOFT [Suspect]
     Indication: FOETAL EXPOSURE DURING PREGNANCY
     Route: 064
  5. PROMETRIUM [Suspect]
     Indication: FOETAL EXPOSURE DURING PREGNANCY
     Route: 064
  6. IBUPROFEN [Suspect]
     Indication: FOETAL EXPOSURE DURING PREGNANCY
     Route: 064
  7. MULTIVITAMINS W/MINERALS [Concomitant]
     Route: 064

REACTIONS (18)
  - Cardiac disorder [Unknown]
  - Arnold-Chiari malformation [Unknown]
  - Nervous system disorder [Unknown]
  - Failure to thrive [Recovering/Resolving]
  - Spina bifida [Unknown]
  - Cerebellar ataxia [Recovering/Resolving]
  - Hydrocephalus [Unknown]
  - Encephalocele [Recovering/Resolving]
  - Meningomyelocele [Unknown]
  - Cytogenetic abnormality [Unknown]
  - Gastrooesophageal reflux disease [Recovered/Resolved]
  - Apnoea [Unknown]
  - Tethered cord syndrome [Recovering/Resolving]
  - Premature baby [Not Recovered/Not Resolved]
  - Renal fusion anomaly [Unknown]
  - Strabismus [Unknown]
  - Developmental delay [Unknown]
  - Cerebral ventriculogram abnormal [Unknown]
